FAERS Safety Report 12473150 (Version 2)
Quarter: 2016Q3

REPORT INFORMATION
  Report Type: Spontaneous
  Country: FR (occurrence: FR)
  Receive Date: 20160616
  Receipt Date: 20160712
  Transmission Date: 20161109
  Serious: Yes (Hospitalization)
  Sender: FDA-Public Use
  Company Number: FR-CONCORDIA PHARMACEUTICALS INC.-CO-PL-FR-2016-272

PATIENT
  Age: 57 Year
  Sex: Female

DRUGS (13)
  1. LEVOTHYROX [Concomitant]
     Active Substance: LEVOTHYROXINE
  2. ESIDREX [Concomitant]
     Active Substance: HYDROCHLOROTHIAZIDE
  3. PLAQUENIL [Suspect]
     Active Substance: HYDROXYCHLOROQUINE SULFATE
     Indication: CRYOGLOBULINAEMIA
     Route: 048
     Dates: start: 20160512, end: 20160517
  4. CYMBALTA [Suspect]
     Active Substance: DULOXETINE HYDROCHLORIDE
     Indication: POLYNEUROPATHY
     Route: 048
     Dates: start: 20160512, end: 20160514
  5. RIVOTRIL [Concomitant]
     Active Substance: CLONAZEPAM
  6. LERCAN [Concomitant]
     Active Substance: LERCANIDIPINE
  7. MICARDIS [Concomitant]
     Active Substance: TELMISARTAN
  8. OCTAGAM IMMUNE GLOBULIN (HUMAN) [Suspect]
     Active Substance: HUMAN IMMUNOGLOBULIN G
     Indication: POLYNEUROPATHY
     Route: 042
     Dates: start: 20160509, end: 20160510
  9. KALEORID [Concomitant]
     Active Substance: POTASSIUM CHLORIDE
  10. CARDENSIEL [Concomitant]
     Active Substance: BISOPROLOL FUMARATE
  11. LAMALINE [Concomitant]
     Active Substance: ACETAMINOPHEN\CAFFEINE\OPIUM
  12. FOLIC ACID. [Concomitant]
     Active Substance: FOLIC ACID
  13. ELISOR [Concomitant]
     Active Substance: PRAVASTATIN SODIUM

REACTIONS (1)
  - Generalised erythema [Recovered/Resolved]

NARRATIVE: CASE EVENT DATE: 20160513
